FAERS Safety Report 25888124 (Version 1)
Quarter: 2025Q4

REPORT INFORMATION
  Report Type: Spontaneous
  Country: US (occurrence: US)
  Receive Date: 20251007
  Receipt Date: 20251007
  Transmission Date: 20260118
  Serious: Yes (Hospitalization)
  Sender: STRIDES
  Company Number: US-STRIDES PHARMA UK LTD.-2024SP016434

PATIENT

DRUGS (3)
  1. PREDNISOLONE [Suspect]
     Active Substance: PREDNISOLONE
     Indication: Colitis
     Dosage: UNK (RECEIVED HIGH DOSE FOLLOWED BY GRADUAL TAPER; DOSES NOT STATED)
     Route: 065
  2. PEMBROLIZUMAB [Suspect]
     Active Substance: PEMBROLIZUMAB
     Indication: Endometrial cancer
     Dosage: UNK
     Route: 065
     Dates: start: 202309, end: 202312
  3. AMIODARONE [Suspect]
     Active Substance: AMIODARONE
     Indication: Atrial fibrillation
     Dosage: UNK
     Route: 065
     Dates: start: 202310

REACTIONS (1)
  - Adrenal insufficiency [Recovered/Resolved]
